FAERS Safety Report 14895425 (Version 1)
Quarter: 2018Q2

REPORT INFORMATION
  Report Type: Spontaneous
  Country: FR (occurrence: FR)
  Receive Date: 20180515
  Receipt Date: 20180515
  Transmission Date: 20180711
  Serious: Yes (Other)
  Sender: FDA-Public Use
  Company Number: FR-MERCK KGAA-2047752

PATIENT
  Age: 28 Year
  Sex: Female

DRUGS (1)
  1. NOVOTHYROX [Suspect]
     Active Substance: LEVOTHYROXINE SODIUM
     Indication: AUTOIMMUNE THYROIDITIS

REACTIONS (16)
  - Psychiatric symptom [None]
  - Loss of consciousness [None]
  - Depression [None]
  - Personal relationship issue [None]
  - Mood altered [None]
  - Alopecia [None]
  - Impaired work ability [None]
  - Blood thyroid stimulating hormone increased [None]
  - Insomnia [None]
  - Fatigue [None]
  - Stress [None]
  - Asthenia [None]
  - Social avoidant behaviour [None]
  - Migraine [Recovering/Resolving]
  - Vertigo [None]
  - Crying [None]

NARRATIVE: CASE EVENT DATE: 2017
